FAERS Safety Report 21977555 (Version 1)
Quarter: 2023Q1

REPORT INFORMATION
  Report Type: Spontaneous
  Country: CN (occurrence: None)
  Receive Date: 20230210
  Receipt Date: 20230210
  Transmission Date: 20230418
  Serious: Yes (Other)
  Sender: FDA-Public Use
  Company Number: CN-ROCHE-3279879

PATIENT
  Age: 46 Year
  Sex: Female

DRUGS (13)
  1. CAPECITABINE [Suspect]
     Active Substance: CAPECITABINE
     Indication: Breast cancer
     Dosage: LAPATINIB + PACLITAXEL ALBUMIN + CAPECITABINE FOR 6 CYCLES
     Route: 048
     Dates: start: 20181024
  2. CAPECITABINE [Suspect]
     Active Substance: CAPECITABINE
     Dosage: LAPATINIB + CAPECITABINE MAINTENANCE THERAPY UNTIL FEBRUARY 2020
     Route: 065
  3. ADO-TRASTUZUMAB EMTANSINE [Suspect]
     Active Substance: ADO-TRASTUZUMAB EMTANSINE
     Indication: Breast cancer
     Dosage: LAPATINIB + CAPECITABINE MAINTENANCE THERAPY UNTIL FEBRUARY 2020
     Route: 065
     Dates: start: 20200831, end: 20210408
  4. ADO-TRASTUZUMAB EMTANSINE [Suspect]
     Active Substance: ADO-TRASTUZUMAB EMTANSINE
     Route: 065
     Dates: start: 20210818
  5. HERCEPTIN [Suspect]
     Active Substance: TRASTUZUMAB
     Indication: Breast cancer
     Dosage: INTERMITTENT TREATMENT TO AUGUST 2018
     Route: 065
     Dates: start: 2011
  6. DOCETAXEL [Concomitant]
     Active Substance: DOCETAXEL
     Indication: Breast cancer
     Dosage: TAC
     Dates: start: 2011
  7. PIRARUBICIN [Concomitant]
     Active Substance: PIRARUBICIN
     Indication: Breast cancer
     Dosage: TAC
     Dates: start: 2011
  8. CYCLOPHOSPHAMIDE [Concomitant]
     Active Substance: CYCLOPHOSPHAMIDE
     Indication: Breast cancer
     Dosage: TAC
     Dates: start: 2011
  9. LAPATINIB [Concomitant]
     Active Substance: LAPATINIB
     Indication: Breast cancer
     Dosage: LAPATINIB + PACLITAXEL ALBUMIN + CAPECITABINE
     Dates: start: 20181024
  10. LAPATINIB [Concomitant]
     Active Substance: LAPATINIB
     Dosage: LAPATINIB + PACLITAXEL ALBUMIN
     Dates: start: 20190317
  11. LAPATINIB [Concomitant]
     Active Substance: LAPATINIB
     Dosage: LAPATINIB + CAPECITABINE
     Dates: end: 202002
  12. PACLITAXEL [Concomitant]
     Active Substance: PACLITAXEL
     Indication: Breast cancer
     Dosage: LAPATINIB + PACLITAXEL ALBUMIN + CAPECITABINE
     Dates: start: 20181024
  13. PACLITAXEL [Concomitant]
     Active Substance: PACLITAXEL
     Dosage: LAPATINIB + PACLITAXEL ALBUMIN
     Dates: start: 20190317

REACTIONS (1)
  - Upper gastrointestinal haemorrhage [Unknown]

NARRATIVE: CASE EVENT DATE: 20210716
